APPROVED DRUG PRODUCT: CRESEMBA
Active Ingredient: ISAVUCONAZONIUM SULFATE
Strength: 186MG
Dosage Form/Route: CAPSULE;ORAL
Application: N207500 | Product #001
Applicant: ASTELLAS PHARMA US INC
Approved: Mar 6, 2015 | RLD: Yes | RS: Yes | Type: RX

PATENTS:
Patent 10206879 | Expires: Sep 14, 2027
Patent 6812238 | Expires: Oct 31, 2025
Patent 10603280 | Expires: Sep 14, 2027
Patent 6812238*PED | Expires: Apr 30, 2026
Patent 10603280*PED | Expires: Mar 14, 2028
Patent 10206879*PED | Expires: Mar 14, 2028

EXCLUSIVITY:
Code: NPP | Date: Dec 8, 2026
Code: ODE-305 | Date: Mar 6, 2022
Code: ODE-454 | Date: Dec 8, 2030
Code: ODE-458 | Date: Dec 8, 2030
Code: ODE-90 | Date: Mar 6, 2022
Code: PED | Date: Sep 6, 2022
Code: PED | Date: Sep 6, 2022
Code: PED | Date: Jun 8, 2031
Code: PED | Date: Jun 8, 2027
Code: PED | Date: Jun 8, 2031
Code: GAIN | Date: Sep 6, 2027
Code: GAIN | Date: Sep 6, 2027